FAERS Safety Report 14531413 (Version 1)
Quarter: 2018Q1

REPORT INFORMATION
  Report Type: Spontaneous
  Country: US (occurrence: US)
  Receive Date: 20180213
  Receipt Date: 20180213
  Transmission Date: 20180509
  Serious: No
  Sender: FDA-Public Use
  Company Number: None

PATIENT
  Age: 65 Year
  Sex: Female

DRUGS (7)
  1. WELLBUTRIN [Concomitant]
     Active Substance: BUPROPION HYDROCHLORIDE
  2. FINACEA [Concomitant]
     Active Substance: AZELAIC ACID
  3. BUPROPION SR [Suspect]
     Active Substance: BUPROPION HYDROCHLORIDE
     Indication: DEPRESSION
     Dosage: ?          QUANTITY:1 TABLET(S);?
     Route: 048
     Dates: start: 20170301, end: 20171201
  4. FIBERCON [Concomitant]
     Active Substance: CALCIUM POLYCARBOPHIL
  5. VITAMIN D [Concomitant]
     Active Substance: CHOLECALCIFEROL
  6. CLOBETASOL [Concomitant]
     Active Substance: CLOBETASOL
  7. TRETINOIN. [Concomitant]
     Active Substance: TRETINOIN

REACTIONS (7)
  - Dry eye [None]
  - Constipation [None]
  - Lethargy [None]
  - Sexual dysfunction [None]
  - Product substitution issue [None]
  - Dry mouth [None]
  - Dysuria [None]

NARRATIVE: CASE EVENT DATE: 20171201
